FAERS Safety Report 6419386-1 (Version None)
Quarter: 2009Q4

REPORT INFORMATION
  Report Type: 
  Country: None (occurrence: None)
  Receive Date: 20091027
  Receipt Date: 20091005
  Transmission Date: 20100525
  Serious: Yes (Hospitalization, Other)
  Sender: FDA-Public Use
  Company Number: AUR-APL-2009-00994

PATIENT
  Age: 71 Year
  Sex: Female

DRUGS (17)
  1. METFORMIN [Suspect]
     Indication: DIABETES MELLITUS
     Dosage: 500MG, TID, ORAL
     Route: 048
     Dates: start: 20090822, end: 20090828
  2. AMLODIPINE [Suspect]
     Dosage: 10MG, DAILY, ORAL
     Route: 048
     Dates: start: 20090822
  3. SOLU-MEDROL [Suspect]
     Indication: PREMEDICATION
     Dosage: - ONE DOSE
     Dates: start: 20090821, end: 20090821
  4. BETADINE [Suspect]
     Indication: INFECTION PROPHYLAXIS
     Dosage: - ONE DOSE - TOPICAL
     Route: 061
     Dates: start: 20090821, end: 20090821
  5. ISOPTIN [Suspect]
     Indication: PREMEDICATION
     Dosage: - ONE DOSE -
     Dates: start: 20090821, end: 20090821
  6. LOVENOX [Suspect]
     Indication: PREMEDICATION
     Dosage: - ONE DOSE - SQ
     Dates: start: 20090821, end: 20090821
  7. ISOSORBIDE DINITRATE [Suspect]
     Indication: PREMEDICATION
     Dosage: - ONE DOSE -
     Dates: start: 20090821, end: 20090821
  8. REPAGLINIDE [Suspect]
     Dosage: 1.5 MG - DAILY - ORAL
     Route: 048
     Dates: start: 20090822, end: 20090828
  9. ASPIRIN [Suspect]
     Dosage: 160MG - DAILY - ORAL
     Route: 048
     Dates: start: 20090822
  10. PLAVIX [Suspect]
     Dosage: 75MG - DAILY - ORAL
     Route: 048
     Dates: start: 20090822
  11. VISIPAQUE [Suspect]
     Indication: SCAN WITH CONTRAST
     Dosage: - ONE DOSE - IV
     Route: 042
     Dates: start: 20090821, end: 20090821
  12. JANUVIA [Concomitant]
  13. AERIUS [Concomitant]
  14. DAFLON [Concomitant]
  15. FLORLAX 4000 [Concomitant]
  16. NORDAZ [Concomitant]
  17. LOPRAZOLAM [Concomitant]

REACTIONS (4)
  - DRUG HYPERSENSITIVITY [None]
  - DRUG INEFFECTIVE [None]
  - IDIOPATHIC URTICARIA [None]
  - VIRAL RASH [None]
